FAERS Safety Report 5325363-4 (Version None)
Quarter: 2007Q2

REPORT INFORMATION
  Report Type: 
  Country: None (occurrence: None)
  Receive Date: 20070515
  Receipt Date: 20070509
  Transmission Date: 20071010
  Serious: Yes (Other)
  Sender: FDA-Public Use
  Company Number: US-JNJFOC-20070502550

PATIENT
  Sex: Male

DRUGS (6)
  1. CONCERTA [Suspect]
  2. CONCERTA [Suspect]
     Indication: ATTENTION DEFICIT/HYPERACTIVITY DISORDER
  3. FLOVENT [Concomitant]
     Indication: ASTHMA
  4. ALBUTEROL [Concomitant]
     Indication: ASTHMA
  5. SINGULAIR [Concomitant]
     Indication: ASTHMA
  6. CLARITIN [Concomitant]
     Indication: MULTIPLE ALLERGIES

REACTIONS (1)
  - DEPRESSION [None]
